FAERS Safety Report 6314011-2 (Version None)
Quarter: 2009Q3

REPORT INFORMATION
  Report Type: 
  Country: None (occurrence: None)
  Receive Date: 20090818
  Receipt Date: 20090803
  Transmission Date: 20100115
  Serious: Yes (Hospitalization)
  Sender: FDA-Public Use
  Company Number: FR-GENENTECH-288663

PATIENT
  Sex: Male

DRUGS (10)
  1. XOLAIR [Suspect]
     Indication: DRUG USE FOR UNKNOWN INDICATION
     Dosage: 375 MG, Q2W
     Route: 058
     Dates: start: 20090408
  2. XOLAIR [Suspect]
     Dosage: UNK
  3. INIPOMP [Suspect]
     Indication: DRUG USE FOR UNKNOWN INDICATION
     Dosage: 20 MG, QD
     Route: 048
  4. SYMBICORT [Suspect]
     Indication: DRUG USE FOR UNKNOWN INDICATION
     Dosage: UNK A?G, QID
  5. BAMBUTEROL [Suspect]
     Indication: DRUG USE FOR UNKNOWN INDICATION
     Dosage: 20 MG, QD
     Route: 048
  6. VENTOLIN [Suspect]
     Indication: DRUG USE FOR UNKNOWN INDICATION
     Dosage: UNK
  7. HYDROCORTISONE [Suspect]
     Indication: DRUG USE FOR UNKNOWN INDICATION
     Dosage: 10 MG, QD
     Route: 048
  8. KARDEGIC [Suspect]
     Indication: DRUG USE FOR UNKNOWN INDICATION
     Dosage: 75 MG, QD
     Route: 048
  9. DAFALGAN [Suspect]
     Indication: DRUG USE FOR UNKNOWN INDICATION
     Dosage: 4000 MG, QD
     Route: 048
  10. SPIRIVA [Concomitant]

REACTIONS (3)
  - AMNESIA [None]
  - BLOOD CREATINE PHOSPHOKINASE INCREASED [None]
  - CEREBELLAR ISCHAEMIA [None]
